FAERS Safety Report 22329318 (Version 1)
Quarter: 2023Q2

REPORT INFORMATION
  Report Type: Other
  Country: CH (occurrence: None)
  Receive Date: 20230517
  Receipt Date: 20230517
  Transmission Date: 20230722
  Serious: Yes (Other)
  Sender: FDA-Public Use
  Company Number: CH-ROCHE-3347703

PATIENT
  Age: 1 Year
  Sex: Male

DRUGS (2)
  1. EMICIZUMAB [Suspect]
     Active Substance: EMICIZUMAB
     Indication: Factor VIII deficiency
     Dosage: LOADING DOSE: 3 MG/KG; MAINTENANCE 1.5 MG/KG
     Route: 058
     Dates: start: 20220609, end: 20220630
  2. EMICIZUMAB [Suspect]
     Active Substance: EMICIZUMAB
     Dosage: LOADING DOSE: 3 MG/KG; MAINTENANCE 1.5 MG/KG
     Route: 058
     Dates: start: 20220707

REACTIONS (1)
  - Haemorrhage [Unknown]
